FAERS Safety Report 8755862 (Version 4)
Quarter: 2013Q1

REPORT INFORMATION
  Report Type: Spontaneous
  Country: US (occurrence: US)
  Receive Date: 20120827
  Receipt Date: 20130131
  Transmission Date: 20140127
  Serious: Yes (Hospitalization, Disabling, Other)
  Sender: FDA-Public Use
  Company Number: US-009507513-1203USA03395

PATIENT
  Sex: Female

DRUGS (4)
  1. FOSAMAX [Suspect]
     Indication: OSTEOPOROSIS
     Dosage: 70 MG, QD
     Route: 048
     Dates: start: 2000, end: 200810
  2. FOSAMAX [Suspect]
     Indication: OSTEOPENIA
  3. FOSAMAX [Suspect]
     Indication: OSTEOPOROSIS
     Dosage: 70 MG, UNK
     Route: 048
     Dates: start: 20080318, end: 201006
  4. FOSAMAX [Suspect]
     Indication: OSTEOPENIA

REACTIONS (46)
  - Femur fracture [Not Recovered/Not Resolved]
  - Closed fracture manipulation [Not Recovered/Not Resolved]
  - Fall [Unknown]
  - Postoperative fever [Recovering/Resolving]
  - Haemoglobin decreased [Recovered/Resolved]
  - Fall [Unknown]
  - Femur fracture [Recovered/Resolved]
  - Open reduction of fracture [Unknown]
  - Deep vein thrombosis [Unknown]
  - Aspartate aminotransferase increased [Unknown]
  - Anaemia postoperative [Unknown]
  - Low turnover osteopathy [Not Recovered/Not Resolved]
  - Fracture [Not Recovered/Not Resolved]
  - Pancreatitis [Unknown]
  - Osteoporosis [Not Recovered/Not Resolved]
  - Stress fracture [Not Recovered/Not Resolved]
  - Cholecystitis acute [Unknown]
  - Cholelithiasis [Unknown]
  - Vitamin D deficiency [Unknown]
  - Tooth disorder [Unknown]
  - Oral disorder [Unknown]
  - Cardiac failure [Unknown]
  - Hypertension [Unknown]
  - Osteoarthritis [Unknown]
  - Hypertonic bladder [Unknown]
  - Blood cholesterol increased [Unknown]
  - Hypothyroidism [Unknown]
  - Type 2 diabetes mellitus [Unknown]
  - Cardiac monitoring abnormal [Unknown]
  - Chest pain [Unknown]
  - Metabolic syndrome [Unknown]
  - Electrocardiogram abnormal [Unknown]
  - Hypokalaemia [Unknown]
  - Red blood cell sedimentation rate increased [Unknown]
  - Fatigue [Unknown]
  - Nephrolithiasis [Unknown]
  - Astigmatism [Unknown]
  - Urinary incontinence [Unknown]
  - Fracture nonunion [Unknown]
  - Haematuria [Unknown]
  - Pelvi-ureteric obstruction [Unknown]
  - Calculus urinary [Unknown]
  - Hydronephrosis [Unknown]
  - Appendix disorder [Unknown]
  - Cataract [Unknown]
  - Rib fracture [Unknown]
